FAERS Safety Report 25239265 (Version 1)
Quarter: 2025Q2

REPORT INFORMATION
  Report Type: Spontaneous
  Country: US (occurrence: None)
  Receive Date: 20250424
  Receipt Date: 20250424
  Transmission Date: 20250717
  Serious: Yes (Disabling)
  Sender: FDA-CTU
  Company Number: None

PATIENT
  Age: 39 Year
  Sex: Male
  Weight: 64.8 kg

DRUGS (1)
  1. DUPIXENT [Suspect]
     Active Substance: DUPILUMAB

REACTIONS (8)
  - Dry eye [None]
  - Ocular hyperaemia [None]
  - Vision blurred [None]
  - Diplopia [None]
  - Rash [None]
  - Rash [None]
  - Dermatitis atopic [None]
  - Impaired quality of life [None]

NARRATIVE: CASE EVENT DATE: 20250401
